FAERS Safety Report 7321695-9 (Version None)
Quarter: 2011Q1

REPORT INFORMATION
  Report Type: 
  Country: None (occurrence: None)
  Receive Date: 20110228
  Receipt Date: 20100715
  Transmission Date: 20110831
  Serious: Yes (Other)
  Sender: FDA-Public Use
  Company Number: US-PFIZER INC-2010030268

PATIENT
  Sex: Male

DRUGS (3)
  1. GABAPENTIN [Concomitant]
     Dosage: UNK
  2. CYMBALTA [Concomitant]
     Dosage: UNK
  3. GEODON [Suspect]
     Dosage: UNK

REACTIONS (1)
  - DYSTONIA [None]
